FAERS Safety Report 15386723 (Version 1)
Quarter: 2018Q3

REPORT INFORMATION
  Report Type: Report from Study
  Country: MX (occurrence: MX)
  Receive Date: 20180914
  Receipt Date: 20180914
  Transmission Date: 20181010
  Serious: Yes (Other)
  Sender: FDA-Public Use
  Company Number: PHHY2018MX092233

PATIENT
  Age: 78 Year
  Sex: Female

DRUGS (5)
  1. LOSARTAN. [Suspect]
     Active Substance: LOSARTAN
     Indication: HYPERTENSION
     Dosage: 1 DF, QD (STARTED 5 YEARS AGO)
     Route: 065
  2. ARTELAC [Suspect]
     Active Substance: HYPROMELLOSES
     Indication: DRY EYE
     Dosage: GEL (OCCASIONALLY ONLY IN CASE OF DRY EYE)
     Route: 065
  3. ARTELAC [Suspect]
     Active Substance: HYPROMELLOSES
     Dosage: 1 GTT, UNK
     Route: 065
  4. TRAVATAN [Suspect]
     Active Substance: TRAVOPROST
     Indication: GLAUCOMA
     Dosage: 2.5 ML, QD (BOTH EYES, STARTED 5 YEARS AGO)
     Route: 065
  5. CHLORTHALIDONE. [Concomitant]
     Active Substance: CHLORTHALIDONE
     Indication: POLYURIA
     Dosage: 0.5 DF, (EVERY THIRD DAY, AFTER 19 APR)
     Route: 065

REACTIONS (5)
  - Visual impairment [Recovering/Resolving]
  - Dizziness [Unknown]
  - Cataract [Not Recovered/Not Resolved]
  - Blood pressure abnormal [Not Recovered/Not Resolved]
  - Dry eye [Unknown]

NARRATIVE: CASE EVENT DATE: 20180902
